FAERS Safety Report 17423963 (Version 2)
Quarter: 2020Q2

REPORT INFORMATION
  Report Type: Spontaneous
  Country: US (occurrence: US)
  Receive Date: 20200217
  Receipt Date: 20200602
  Transmission Date: 20200713
  Serious: Yes (Hospitalization, Disabling, Other)
  Sender: FDA-Public Use
  Company Number: US-009507513-2002USA003519

PATIENT
  Age: 57 Year
  Sex: Male

DRUGS (2)
  1. COZAAR [Suspect]
     Active Substance: LOSARTAN POTASSIUM
     Indication: HYPERTENSION
     Dosage: 50 MILLIGRAMS/DAILY
     Route: 048
     Dates: start: 201402
  2. COZAAR [Suspect]
     Active Substance: LOSARTAN POTASSIUM
     Indication: ADENOCARCINOMA PANCREAS

REACTIONS (4)
  - Drug ineffective for unapproved indication [Recovered/Resolved]
  - Recurrent cancer [Recovered/Resolved]
  - Diabetes mellitus [Unknown]
  - Neuropathy peripheral [Not Recovered/Not Resolved]

NARRATIVE: CASE EVENT DATE: 201402
